FAERS Safety Report 25916704 (Version 1)
Quarter: 2025Q4

REPORT INFORMATION
  Report Type: Report from Study
  Country: IN (occurrence: IN)
  Receive Date: 20251014
  Receipt Date: 20251014
  Transmission Date: 20260117
  Serious: Yes (Hospitalization, Other)
  Sender: CIPLA
  Company Number: IN-CIPLA LTD.-2025IN11532

PATIENT

DRUGS (7)
  1. METOPROLOL SUCCINATE [Suspect]
     Active Substance: METOPROLOL SUCCINATE
     Indication: Product used for unknown indication
     Dosage: 25 MILLIGRAM, FREQUENCY 1 (UNSPECIFIED UNITS)
     Route: 048
     Dates: start: 20250709
  2. UDAPA M 500 XR [Concomitant]
     Indication: Product used for unknown indication
     Dosage: UNK
     Route: 065
  3. GLYCOMET GP [Concomitant]
     Indication: Product used for unknown indication
     Dosage: UNK, STRENGTH: 0.5 MG
     Route: 065
  4. ASPIRIN\CLOPIDOGREL BISULFATE [Concomitant]
     Active Substance: ASPIRIN\CLOPIDOGREL BISULFATE
     Indication: Product used for unknown indication
     Dosage: UNK, STRENGTH: 150 MG
     Route: 065
  5. ATORVASTATIN [Concomitant]
     Active Substance: ATORVASTATIN
     Indication: Product used for unknown indication
     Dosage: UNK
     Route: 065
  6. FUROSEMIDE\SPIRONOLACTONE [Concomitant]
     Active Substance: FUROSEMIDE\SPIRONOLACTONE
     Indication: Product used for unknown indication
     Dosage: UNK, STRENGTH: 50 MG
     Route: 065
  7. RENERVE PLUS [MECOBALAMIN;NICOTINAMIDE;PYRIDOXINE HYDROCHLORIDE] [Concomitant]
     Indication: Product used for unknown indication
     Dosage: UNK
     Route: 065

REACTIONS (4)
  - Cardiac disorder [Unknown]
  - Insomnia [Recovered/Resolved]
  - Therapeutic response unexpected [Unknown]
  - Pain [Recovered/Resolved]

NARRATIVE: CASE EVENT DATE: 20250101
